FAERS Safety Report 7681378-2 (Version None)
Quarter: 2011Q3

REPORT INFORMATION
  Report Type: 
  Country: None (occurrence: None)
  Receive Date: 20110812
  Receipt Date: 20110809
  Transmission Date: 20111222
  Serious: Yes (Hospitalization)
  Sender: FDA-Public Use
  Company Number: BE-ABBOTT-11P-013-0844708-00

PATIENT
  Sex: Female

DRUGS (2)
  1. HUMIRA [Suspect]
     Indication: ANKYLOSING SPONDYLITIS
     Dates: start: 20060221, end: 20110414
  2. HUMIRA [Suspect]
     Dates: start: 20110526

REACTIONS (2)
  - MENORRHAGIA [None]
  - UTERINE LEIOMYOMA [None]
